FAERS Safety Report 9434179 (Version 1)
Quarter: 2013Q3

REPORT INFORMATION
  Report Type: Spontaneous
  Country: US (occurrence: None)
  Receive Date: 20130730
  Receipt Date: 20130730
  Transmission Date: 20140515
  Serious: No
  Sender: FDA-Public Use
  Company Number: None

PATIENT
  Age: 7 Year
  Sex: Female

DRUGS (1)
  1. TEV-TROPIN [Suspect]
     Indication: GONADAL DYSGENESIS
     Dosage: 1.6MG  6 DAYS A WEEK SQ
     Route: 058
     Dates: start: 20121012

REACTIONS (1)
  - Weight increased [None]
